FAERS Safety Report 7933414-3 (Version None)
Quarter: 2011Q4

REPORT INFORMATION
  Report Type: 
  Country: None (occurrence: None)
  Receive Date: 20111122
  Receipt Date: 20111122
  Transmission Date: 20120403
  Serious: Yes (Life-Threatening, Hospitalization, Other)
  Sender: FDA-Public Use
  Company Number: None

PATIENT
  Sex: Male
  Weight: 108.86 kg

DRUGS (1)
  1. PROPECIA [Suspect]
     Indication: ALOPECIA
     Dosage: 1MG
     Route: 048

REACTIONS (34)
  - EJACULATION DISORDER [None]
  - ABNORMAL BEHAVIOUR [None]
  - HYPOTHYROIDISM [None]
  - ARRHYTHMIA [None]
  - MENTAL IMPAIRMENT [None]
  - SUICIDAL IDEATION [None]
  - DISSOCIATIVE DISORDER [None]
  - HYPOTONIA [None]
  - HYPERTENSION [None]
  - LIBIDO DECREASED [None]
  - EJACULATION FAILURE [None]
  - PANIC ATTACK [None]
  - PSYCHOTIC DISORDER [None]
  - CONFUSIONAL STATE [None]
  - TESTICULAR PAIN [None]
  - INFERTILITY [None]
  - ORGANIC ERECTILE DYSFUNCTION [None]
  - ERECTILE DYSFUNCTION [None]
  - ACTIVITIES OF DAILY LIVING IMPAIRED [None]
  - MIDDLE INSOMNIA [None]
  - ABNORMAL WEIGHT GAIN [None]
  - BLOOD TRIGLYCERIDES INCREASED [None]
  - GYNAECOMASTIA [None]
  - SEMEN VOLUME DECREASED [None]
  - PERSONALITY DISORDER [None]
  - ANGER [None]
  - IMPAIRED DRIVING ABILITY [None]
  - SLEEP APNOEA SYNDROME [None]
  - SPERMATOZOA PROGRESSIVE MOTILITY DECREASED [None]
  - SEMEN ANALYSIS ABNORMAL [None]
  - ANXIETY [None]
  - INSOMNIA [None]
  - DEPRESSION [None]
  - BLOOD TESTOSTERONE DECREASED [None]
